FAERS Safety Report 8793165 (Version 2)
Quarter: 2012Q4

REPORT INFORMATION
  Report Type: 
  Country: BR (occurrence: BR)
  Receive Date: 20120918
  Receipt Date: 20121005
  Transmission Date: 20130627
  Serious: Yes (Death, Life-Threatening, Hospitalization)
  Sender: FDA-Public Use
  Company Number: BR-B.I. PHARMACEUTICALS,INC./RIDGEFIELD-2012-BR-01054BR

PATIENT
  Age: 89 Year
  Sex: Female

DRUGS (9)
  1. TRAYENTA [Suspect]
     Indication: TYPE 2 DIABETES MELLITUS
     Dosage: 5 mg
     Route: 048
     Dates: start: 201205, end: 201208
  2. OMEPRAZOL [Concomitant]
     Indication: GASTRITIS
  3. CEBRALAT [Concomitant]
     Indication: ARTERIOSCLEROSIS
  4. ACETYLSALICYLIC ACID [Concomitant]
     Indication: ARTERIOSCLEROSIS
  5. EUTIROX [Concomitant]
     Indication: HYPOTHYROIDISM
  6. DAFLON [Concomitant]
     Indication: VARICOSE VEIN
  7. NORTRIPTILINA [Concomitant]
     Indication: DEPRESSION
  8. ENAX [Concomitant]
     Indication: RENAL IMPAIRMENT
  9. MEDICATION NOT FURTHER SPECIFIED [Concomitant]
     Indication: MYALGIA

REACTIONS (8)
  - Hypoglycaemia [Fatal]
  - Hypovolaemic shock [Fatal]
  - Renal failure [Fatal]
  - Cardiac arrest [Not Recovered/Not Resolved]
  - Coma [Not Recovered/Not Resolved]
  - Abdominal pain [Not Recovered/Not Resolved]
  - Abdominal distension [Not Recovered/Not Resolved]
  - Asthenia [Not Recovered/Not Resolved]
